FAERS Safety Report 16265509 (Version 3)
Quarter: 2019Q4

REPORT INFORMATION
  Report Type: Spontaneous
  Country: US (occurrence: US)
  Receive Date: 20190502
  Receipt Date: 20191126
  Transmission Date: 20200122
  Serious: No
  Sender: FDA-Public Use
  Company Number: US-SA-2019SA120103

PATIENT
  Age: 67 Year
  Sex: Male

DRUGS (11)
  1. PROAIR HFA [Concomitant]
     Active Substance: ALBUTEROL SULFATE
  2. SYMBICORT [Concomitant]
     Active Substance: BUDESONIDE\FORMOTEROL FUMARATE DIHYDRATE
  3. DUPIXENT [Suspect]
     Active Substance: DUPILUMAB
     Indication: DERMATITIS ATOPIC
     Dosage: 300 MG, QOW
     Route: 058
     Dates: start: 20181101
  4. ASPIRIN. [Concomitant]
     Active Substance: ASPIRIN
  5. FLONASE ALLERGY RELIEF [Concomitant]
     Active Substance: FLUTICASONE PROPIONATE
  6. VITAMIN C [Concomitant]
     Active Substance: ASCORBIC ACID
  7. LORATADINE. [Concomitant]
     Active Substance: LORATADINE
  8. ALLERGY [CHLORPHENAMINE MALEATE] [Concomitant]
  9. VITAMIN D NOS [Concomitant]
     Active Substance: VITAMIN D NOS
  10. FISH OIL [Concomitant]
     Active Substance: FISH OIL
  11. AMLODIPINE BESYLATE. [Concomitant]
     Active Substance: AMLODIPINE BESYLATE

REACTIONS (4)
  - Back pain [Unknown]
  - Insomnia [Unknown]
  - Eczema [Unknown]
  - Pruritus [Unknown]
